FAERS Safety Report 4902355-8 (Version None)
Quarter: 2006Q1

REPORT INFORMATION
  Report Type: 
  Country: None (occurrence: None)
  Receive Date: 20060202
  Receipt Date: 20060202
  Transmission Date: 20060701
  Serious: Yes (Hospitalization, Other)
  Sender: FDA-Public Use
  Company Number: None

PATIENT
  Age: 67 Year
  Sex: Female

DRUGS (4)
  1. DR. SCHOLL'S EXTRA THICK CALLUS REMOVERS TOPICALS [Suspect]
     Dosage: 2 PADS TOPICAL
     Route: 061
     Dates: start: 20040613, end: 20040613
  2. TRIPLE ANTIBIOTIC OINTMENT [Concomitant]
  3. EPSOM SALT [Concomitant]
  4. HYDROGEN PEROXIDE SOLUTION [Concomitant]

REACTIONS (10)
  - BUNION [None]
  - CELLULITIS [None]
  - CULTURE WOUND POSITIVE [None]
  - ERYTHEMA [None]
  - OEDEMA PERIPHERAL [None]
  - PAIN [None]
  - PHARMACEUTICAL PRODUCT COMPLAINT [None]
  - PURULENT DISCHARGE [None]
  - SKIN DISCOLOURATION [None]
  - SKIN NECROSIS [None]
